FAERS Safety Report 6488522-3 (Version None)
Quarter: 2009Q4

REPORT INFORMATION
  Report Type: 
  Country: None (occurrence: None)
  Receive Date: 20091207
  Receipt Date: 20091125
  Transmission Date: 20100525
  Serious: Yes (Hospitalization)
  Sender: FDA-Public Use
  Company Number: 2009029251

PATIENT
  Age: 66 Year
  Sex: Female
  Weight: 60 kg

DRUGS (8)
  1. TREANDA [Suspect]
     Dosage: 150 MG, INTRAVENOUS
     Route: 042
     Dates: start: 20091107, end: 20091108
  2. RITUXIMAB [Suspect]
     Dosage: 300 MG, INTRAVENOUS
     Route: 042
     Dates: start: 20091105, end: 20091106
  3. SUBOXONE (NALOXONE, BUPRENORPHINE) [Concomitant]
  4. ENALAPRIL MALEATE [Concomitant]
  5. METOPROLOL (METOPROLOL) [Concomitant]
  6. ALOPURINOL (ALLOPURINOL) [Concomitant]
  7. PANTOPRAZOL (PANTOPRAZOLE SODIUM) [Concomitant]
  8. ASPIRIN [Concomitant]

REACTIONS (2)
  - HAEMOLYTIC ANAEMIA [None]
  - LEUKOPENIA [None]
